FAERS Safety Report 5731934-3 (Version None)
Quarter: 2008Q2

REPORT INFORMATION
  Report Type: 
  Country: None (occurrence: None)
  Receive Date: 20080508
  Receipt Date: 20080501
  Transmission Date: 20081010
  Serious: Yes (Disabling)
  Sender: FDA-Public Use
  Company Number: GB-MERCK-0805GBR00022

PATIENT
  Age: 48 Year
  Sex: Female
  Weight: 47 kg

DRUGS (4)
  1. ZOCOR [Suspect]
     Indication: HYPERLIPIDAEMIA
     Route: 048
     Dates: start: 20080125, end: 20080410
  2. PERINDOPRIL ARGININE [Concomitant]
     Indication: HYPERTENSION
     Route: 048
     Dates: start: 20040801
  3. BUDESONIDE AND FORMOTEROL FUMARATE [Concomitant]
     Indication: ASTHMA
     Dates: start: 20050801
  4. ALBUTEROL SULFATE [Concomitant]
     Indication: ASTHMA
     Dates: start: 20070301

REACTIONS (3)
  - ASTHMA [None]
  - CONDITION AGGRAVATED [None]
  - EXERCISE TOLERANCE DECREASED [None]
